FAERS Safety Report 11299301 (Version 1)
Quarter: 2015Q3

REPORT INFORMATION
  Report Type: Spontaneous
  Country: US (occurrence: US)
  Receive Date: 20150722
  Receipt Date: 20150722
  Transmission Date: 20151125
  Serious: Yes (Other)
  Sender: FDA-Public Use
  Company Number: US-ELI_LILLY_AND_COMPANY-US201209004741

PATIENT
  Sex: Female

DRUGS (5)
  1. PLAVIX [Concomitant]
     Active Substance: CLOPIDOGREL BISULFATE
  2. EVISTA [Suspect]
     Active Substance: RALOXIFENE HYDROCHLORIDE
     Indication: OSTEOPOROSIS
     Dosage: 60 MG, QD
     Dates: start: 2002, end: 20120910
  3. VITAMIN D [Concomitant]
     Active Substance: CHOLECALCIFEROL
  4. CALCIUM [Concomitant]
     Active Substance: CALCIUM
  5. INSULIN [Concomitant]
     Active Substance: INSULIN NOS

REACTIONS (7)
  - Chest pain [Unknown]
  - Gastrooesophageal reflux disease [Not Recovered/Not Resolved]
  - Drug dose omission [Unknown]
  - Diabetes mellitus [Not Recovered/Not Resolved]
  - Memory impairment [Not Recovered/Not Resolved]
  - Transient ischaemic attack [Unknown]
  - Hypoaesthesia [Unknown]
